FAERS Safety Report 5301035-7 (Version None)
Quarter: 2007Q2

REPORT INFORMATION
  Report Type: 
  Country: None (occurrence: None)
  Receive Date: 20070411
  Receipt Date: 20070330
  Transmission Date: 20071010
  Serious: Yes (Hospitalization)
  Sender: FDA-Public Use
  Company Number: 2007SP005878

PATIENT

DRUGS (1)
  1. VIRAFERONPEG [Suspect]
     Indication: HEPATITIS C

REACTIONS (1)
  - PHLEBITIS [None]
